FAERS Safety Report 8547343 (Version 2)
Quarter: 2012Q4

REPORT INFORMATION
  Report Type: 
  Country: US (occurrence: US)
  Receive Date: 20120504
  Receipt Date: 20120920
  Transmission Date: 20130627
  Serious: Yes (Hospitalization, Other)
  Sender: FDA-Public Use
  Company Number: US-ELI_LILLY_AND_COMPANY-US201202005591

PATIENT
  Age: 79 Year
  Sex: Female
  Weight: 49.89 kg

DRUGS (16)
  1. FORTEO [Suspect]
     Indication: OSTEOPOROSIS
     Dosage: 20 ug, qd
     Route: 058
     Dates: start: 201009
  2. FORTEO [Suspect]
     Dosage: 20 ug, qd
     Route: 058
     Dates: end: 20120313
  3. DIGOXIN [Concomitant]
     Dosage: UNK, unknown
     Route: 065
  4. LIPITOR [Concomitant]
     Dosage: UNK, unknown
     Route: 065
  5. PLAVIX [Concomitant]
     Dosage: UNK, unknown
     Route: 065
  6. ECOTRIN [Concomitant]
     Dosage: UNK, unknown
     Route: 065
  7. FOLIC ACID [Concomitant]
     Dosage: UNK, unknown
     Route: 065
  8. VITAMIN C [Concomitant]
     Dosage: UNK, unknown
     Route: 065
  9. VITAMIN D NOS [Concomitant]
     Dosage: UNK, unknown
     Route: 065
  10. METOPROLOL [Concomitant]
     Dosage: UNK, unknown
     Route: 065
  11. LISINOPRIL [Concomitant]
     Dosage: UNK, unknown
     Route: 065
  12. FOSINOPRIL [Concomitant]
     Dosage: 10 mg, UNK
  13. CALCIUM + VITAMIN D [Concomitant]
     Dosage: 600 mg, UNK
  14. SYNTHROID [Concomitant]
     Dosage: 100 ug, UNK
  15. VITAMIN B12 [Concomitant]
     Dosage: UNK
  16. DRISDOL [Concomitant]
     Dosage: 50000 u, monthly (1/M)

REACTIONS (4)
  - Coronary artery occlusion [Unknown]
  - Angina pectoris [Unknown]
  - Pneumothorax [Unknown]
  - Arthralgia [Unknown]
